FAERS Safety Report 9345785 (Version 3)
Quarter: 2013Q3

REPORT INFORMATION
  Report Type: Spontaneous
  Country: US (occurrence: US)
  Receive Date: 20130613
  Receipt Date: 20130716
  Transmission Date: 20140515
  Serious: No
  Sender: FDA-Public Use
  Company Number: US-PFIZER INC-2013175312

PATIENT
  Age: 66 Year
  Sex: Male

DRUGS (4)
  1. INLYTA [Suspect]
     Indication: MALIGNANT MELANOMA
     Dosage: 5 MG, 2X/DAY
     Route: 048
     Dates: start: 20130318, end: 20130528
  2. NEURONTIN [Concomitant]
     Indication: NEUROPATHY PERIPHERAL
     Dosage: 400 MG, 4X/DAY
  3. FLUOXETINE [Concomitant]
     Indication: DEPRESSION
     Dosage: 20 MG, 1X/DAY
  4. VYTORIN [Concomitant]
     Indication: HYPERLIPIDAEMIA
     Dosage: 10-20 1 TAB QD

REACTIONS (3)
  - Disease progression [Not Recovered/Not Resolved]
  - Malignant melanoma [Not Recovered/Not Resolved]
  - Off label use [Unknown]
